FAERS Safety Report 8102154-2 (Version None)
Quarter: 2012Q1

REPORT INFORMATION
  Report Type: 
  Country: None (occurrence: None)
  Receive Date: 20120201
  Receipt Date: 20120125
  Transmission Date: 20120608
  Serious: Yes (Other)
  Sender: FDA-Public Use
  Company Number: US-BIOGENIDEC-2011BI040103

PATIENT
  Age: 53 Year
  Sex: Male

DRUGS (37)
  1. PIOGLITAZONE [Concomitant]
     Indication: DIABETES MELLITUS
  2. DOCUSATE SODIUM [Concomitant]
  3. CARVEDILOL [Concomitant]
     Indication: HYPERTENSION
  4. FERROUS SULFATE TAB [Concomitant]
  5. LEVOTHYROXINE SODIUM [Concomitant]
     Indication: THYROID DISORDER
  6. CARBAMAZEPINE [Concomitant]
  7. ERGOCALCIFEROL [Concomitant]
  8. ASCORBIC ACID [Concomitant]
  9. REGULAR INSULIN [Concomitant]
     Indication: DIABETES MELLITUS
     Route: 058
  10. OMEGA-3 FATTY ACID [Concomitant]
  11. PLAVIX [Concomitant]
  12. PROTRIPTYLINE [Concomitant]
  13. PROZAC [Concomitant]
     Indication: DEPRESSION
  14. TYSABRI [Suspect]
     Indication: MULTIPLE SCLEROSIS
     Route: 042
     Dates: start: 20090121
  15. DESONIDE TOPICAL CREAM [Concomitant]
  16. GABAPENTIN [Concomitant]
  17. NIACIN [Concomitant]
     Indication: HYPERLIPIDAEMIA
  18. OMEPRAZOLE [Concomitant]
  19. FOLIC ACID [Concomitant]
  20. METFORMIN HCL [Concomitant]
     Indication: DIABETES MELLITUS
  21. MINOXIDIL [Concomitant]
     Indication: HYPERTENSION
  22. POLYETHYLENE GLYCOL [Concomitant]
  23. CARBAMAZEPINE [Concomitant]
     Indication: MULTIPLE SCLEROSIS
  24. VITAMIN E [Concomitant]
  25. NPH, HUMAN INSULIN [Concomitant]
     Route: 058
  26. ATORVASTATIN [Concomitant]
     Indication: HYPERLIPIDAEMIA
  27. CENTRUM [Concomitant]
  28. CHOLECALCIFEROL [Concomitant]
  29. TIZANIDINE HCL [Concomitant]
  30. FENOFIBRIC ACID [Concomitant]
     Indication: HYPERLIPIDAEMIA
  31. LOVAZA [Concomitant]
     Indication: HYPERLIPIDAEMIA
  32. ASPIRIN [Concomitant]
  33. NPH, HUMAN INSULIN [Concomitant]
     Indication: DIABETES MELLITUS
     Route: 058
  34. POTASSIUM EXTENDED RELEASE [Concomitant]
  35. METHYLCELLULOSE [Concomitant]
  36. CYNACOBALAMIN [Concomitant]
  37. METOLAZONE [Concomitant]
     Indication: HYPERTENSION

REACTIONS (3)
  - DRUG SPECIFIC ANTIBODY PRESENT [None]
  - IDIOPATHIC THROMBOCYTOPENIC PURPURA [None]
  - DRY MOUTH [None]
